FAERS Safety Report 4622184-2 (Version None)
Quarter: 2005Q1

REPORT INFORMATION
  Report Type: 
  Country: None (occurrence: None)
  Receive Date: 20050329
  Receipt Date: 20050314
  Transmission Date: 20050727
  Serious: Yes (Hospitalization)
  Sender: FDA-Public Use
  Company Number: 213086

PATIENT
  Age: 43 Year
  Sex: Male

DRUGS (4)
  1. EFALIZUMAB(EFALIZUMAB) PWDR + SOLVENT, INJECTION SOLN, 125 MG [Suspect]
     Indication: PSORIASIS
     Dosage: 1 MG/KG,1/WEEK, SUBCUTANEOUS
     Route: 058
     Dates: start: 20050221
  2. RAMIPRIL [Concomitant]
  3. AMLODIPINE BESYLATE (AMLODIPINE BESYLATE) [Concomitant]
  4. HYDROXZYNE HYDROCHLORIDE (HYDROXZINE HYDROCHLORIDE) [Concomitant]

REACTIONS (2)
  - BLOOD CREATINE INCREASED [None]
  - PANCREATITIS [None]
